FAERS Safety Report 8621562 (Version 3)
Quarter: 2012Q4

REPORT INFORMATION
  Report Type: 
  Country: US (occurrence: US)
  Receive Date: 20120619
  Receipt Date: 20120906
  Transmission Date: 20130627
  Serious: Yes (Other)
  Sender: FDA-Public Use
  Company Number: US-PFIZER INC-2012146192

PATIENT
  Age: 11 Year
  Sex: Female
  Weight: 27.2 kg

DRUGS (1)
  1. CHILDRENS ADVIL [Suspect]
     Dosage: twice
     Route: 048
     Dates: start: 2012, end: 201206

REACTIONS (1)
  - Convulsion [Recovered/Resolved]
